FAERS Safety Report 9310416 (Version 2)
Quarter: 2013Q3

REPORT INFORMATION
  Report Type: Spontaneous
  Country: US (occurrence: US)
  Receive Date: 20130527
  Receipt Date: 20130731
  Transmission Date: 20140515
  Serious: No
  Sender: FDA-Public Use
  Company Number: US-PFIZER INC-2013159783

PATIENT
  Sex: Male

DRUGS (2)
  1. LYRICA [Suspect]
     Dosage: UNK
     Dates: start: 20120501
  2. CYMBALTA [Suspect]
     Dosage: UNK

REACTIONS (3)
  - Somnolence [Unknown]
  - Fatigue [Unknown]
  - Muscle spasms [Unknown]
